FAERS Safety Report 23582456 (Version 1)
Quarter: 2024Q1

REPORT INFORMATION
  Report Type: Spontaneous
  Country: US (occurrence: US)
  Receive Date: 20240229
  Receipt Date: 20240229
  Transmission Date: 20240410
  Serious: No
  Sender: FDA-Public Use
  Company Number: US-BAUSCHBL-2024BNL002293

PATIENT
  Age: 69 Year
  Sex: Male

DRUGS (2)
  1. LATANOPROST [Suspect]
     Active Substance: LATANOPROST
     Indication: Intraocular pressure test
     Route: 047
  2. ARTIFICIAL TEARS (CARMELLOSE SODIUM) [Concomitant]
     Indication: Product used for unknown indication
     Route: 065

REACTIONS (3)
  - Foreign body sensation in eyes [Unknown]
  - Dry eye [Unknown]
  - Vision blurred [Unknown]
